FAERS Safety Report 7999298-2 (Version None)
Quarter: 2011Q4

REPORT INFORMATION
  Report Type: 
  Country: None (occurrence: None)
  Receive Date: 20111221
  Receipt Date: 20111220
  Transmission Date: 20120403
  Serious: Yes (Life-Threatening, Hospitalization)
  Sender: FDA-Public Use
  Company Number: CHPA2011DE018401

PATIENT
  Age: 56 Year
  Sex: Female
  Weight: 83 kg

DRUGS (7)
  1. IBUPROFEN [Suspect]
     Dosage: 400 MG, TID
     Route: 048
     Dates: start: 20110726, end: 20110729
  2. HYDROCHLOROTHIAZIDE [Concomitant]
     Indication: HYPERTENSION
     Dosage: 12.5 MG, QD
     Route: 048
     Dates: start: 20110301, end: 20110901
  3. IBUPROFEN [Suspect]
     Dosage: 600 MG, TID
     Route: 048
     Dates: start: 20110729, end: 20110807
  4. TIM-OPHTAL [Concomitant]
     Indication: GLAUCOMA
     Dosage: 2 DRP, BID
     Route: 047
     Dates: start: 20100101, end: 20110926
  5. IBUPROFEN [Suspect]
     Indication: GOUT
     Dosage: 800 MG, TID
     Route: 048
     Dates: start: 20110808, end: 20110830
  6. LEVOTHYROXINE SODIUM [Concomitant]
     Indication: HYPOTHYROIDISM
     Dosage: 100 UG, QD
     Route: 048
     Dates: start: 19810101
  7. RAMIPRIL [Concomitant]
     Indication: HYPERTENSION
     Dosage: 10 MG, BID
     Route: 048
     Dates: start: 20060101, end: 20110901

REACTIONS (5)
  - OFF LABEL USE [None]
  - OVERDOSE [None]
  - URATE NEPHROPATHY [None]
  - HYPERURICAEMIA [None]
  - RENAL FAILURE ACUTE [None]
